FAERS Safety Report 9921228 (Version 2)
Quarter: 2014Q1

REPORT INFORMATION
  Report Type: Report from Study
  Country: BR (occurrence: BR)
  Receive Date: 20140225
  Receipt Date: 20140225
  Transmission Date: 20141002
  Serious: Yes (Death, Hospitalization, Other)
  Sender: FDA-Public Use
  Company Number: BR-ROCHE-1290949

PATIENT
  Age: 59 Year
  Sex: Male

DRUGS (11)
  1. MYCOPHENOLATE MOFETIL [Suspect]
     Indication: RENAL TRANSPLANT
     Route: 065
     Dates: start: 20070221
  2. BELATACEPT [Suspect]
     Indication: RENAL TRANSPLANT
     Route: 042
     Dates: start: 20070221, end: 20130927
  3. PREDNISONE [Suspect]
     Indication: RENAL TRANSPLANT
     Route: 065
     Dates: start: 20070907
  4. GEMCITABINE [Concomitant]
     Dosage: 40 MG/ML
     Route: 065
  5. INSULIN [Concomitant]
  6. DIPYRONE [Concomitant]
  7. OMEPRAZOL [Concomitant]
  8. SERTRALINE [Concomitant]
  9. DOMPERIDON [Concomitant]
  10. SIMVASTATIN [Concomitant]
  11. CODEINE [Concomitant]

REACTIONS (2)
  - Death [Fatal]
  - Pancreatic neoplasm [Not Recovered/Not Resolved]
